FAERS Safety Report 7131068-X (Version None)
Quarter: 2010Q4

REPORT INFORMATION
  Report Type: 
  Country: None (occurrence: None)
  Receive Date: 20101201
  Receipt Date: 20101124
  Transmission Date: 20110411
  Serious: Yes (Other)
  Sender: FDA-Public Use
  Company Number: US-GILEAD-2010-0033757

PATIENT
  Sex: Female

DRUGS (3)
  1. LETAIRIS [Suspect]
     Indication: PULMONARY ARTERIAL HYPERTENSION
     Route: 048
     Dates: start: 20100928, end: 20101109
  2. FLOLAN [Concomitant]
  3. ADCIRCA [Concomitant]

REACTIONS (3)
  - HEADACHE [None]
  - NO THERAPEUTIC RESPONSE [None]
  - PULMONARY ARTERIAL HYPERTENSION [None]
